FAERS Safety Report 19084057 (Version 1)
Quarter: 2021Q2

REPORT INFORMATION
  Report Type: Spontaneous
  Country: US (occurrence: US)
  Receive Date: 20210401
  Receipt Date: 20210401
  Transmission Date: 20210717
  Serious: Yes (Other)
  Sender: FDA-Public Use
  Company Number: US-EPIZYME, INC-2021USEPIZYME0199

PATIENT

DRUGS (1)
  1. TAZVERIK [Suspect]
     Active Substance: TAZEMETOSTAT HYDROBROMIDE
     Indication: B-CELL LYMPHOMA
     Route: 048

REACTIONS (2)
  - Rash [Unknown]
  - Dyspnoea [Unknown]
